FAERS Safety Report 6036472-9 (Version None)
Quarter: 2009Q1

REPORT INFORMATION
  Report Type: 
  Country: None (occurrence: None)
  Receive Date: 20090112
  Receipt Date: 20081229
  Transmission Date: 20090719
  Serious: Yes (Other)
  Sender: FDA-Public Use
  Company Number: 2009AL000070

PATIENT
  Age: 62 Year
  Sex: Male

DRUGS (8)
  1. NIFEDIPINE [Suspect]
     Indication: DRUG USE FOR UNKNOWN INDICATION
  2. DIPYRIDAMOLE [Suspect]
     Indication: DRUG USE FOR UNKNOWN INDICATION
  3. ACETYLSALICYLIC ACID SRT [Concomitant]
  4. BENDROFLUMETHIAZIDE [Concomitant]
  5. GLICLAZIDE [Concomitant]
  6. LISINOPRIL [Concomitant]
  7. ROSIGLITAZONE MALEATE [Concomitant]
  8. ROSUVASTATIN CALCIUM [Concomitant]

REACTIONS (2)
  - DIABETES MELLITUS INADEQUATE CONTROL [None]
  - WEIGHT FLUCTUATION [None]
